FAERS Safety Report 14987031 (Version 1)
Quarter: 2018Q2

REPORT INFORMATION
  Report Type: Spontaneous
  Country: DE (occurrence: DE)
  Receive Date: 20180608
  Receipt Date: 20180608
  Transmission Date: 20180711
  Serious: Yes (Hospitalization)
  Sender: FDA-Public Use
  Company Number: DE-TEVA-2018-DE-903724

PATIENT
  Age: 73 Year
  Sex: Male

DRUGS (8)
  1. TAMSULOSIN [Concomitant]
     Active Substance: TAMSULOSIN
     Dosage: 0.4 MG, 1-0-0-0
  2. LEVOTHYROXIN [Concomitant]
     Active Substance: LEVOTHYROXINE
     Dosage: 125 ?G, 1-0-0-0
  3. CAPTOPRIL. [Concomitant]
     Active Substance: CAPTOPRIL
     Dosage: 100 MG, 0.5-0-0-0
  4. ASS 100 [Concomitant]
     Active Substance: ASPIRIN
     Dosage: 100 MG, 0-1-0-0
  5. SYREA [Suspect]
     Active Substance: HYDROXYUREA
     Dosage: 500 MG, 1-1-0-0
  6. SIMVASTATIN. [Concomitant]
     Active Substance: SIMVASTATIN
     Dosage: 20 MG, 0-0-0.5-0
  7. CALCIUM [Concomitant]
     Active Substance: CALCIUM
     Dosage: NK
     Route: 065
  8. DULOXETINE. [Suspect]
     Active Substance: DULOXETINE
     Dosage: 1-0-0-0
     Route: 065

REACTIONS (3)
  - Vomiting [Unknown]
  - Hypotension [Unknown]
  - General physical health deterioration [Unknown]
